FAERS Safety Report 6625539-X (Version None)
Quarter: 2010Q1

REPORT INFORMATION
  Report Type: 
  Country: None (occurrence: None)
  Receive Date: 20100305
  Receipt Date: 20100301
  Transmission Date: 20100710
  Serious: Yes (Death, Hospitalization, Other)
  Sender: FDA-Public Use
  Company Number: 2010SP007597

PATIENT
  Age: 69 Year
  Sex: Female

DRUGS (10)
  1. TEMODAR [Suspect]
     Indication: GLIOBLASTOMA MULTIFORME
     Dosage: 200 MG/ M2; QD; PO
     Route: 048
     Dates: start: 20091226, end: 20091230
  2. PEPCID (CON.) [Concomitant]
  3. KEPPRA (CON.) [Concomitant]
  4. VALTREX (CON.) [Concomitant]
  5. PENTAMIDINE (CON.) [Concomitant]
  6. LISINOPRIL (CON.) [Concomitant]
  7. ZOCOR (CON.) [Concomitant]
  8. DECADRON (CON.) [Concomitant]
  9. DIFLUCAN (CON.) [Concomitant]
  10. ZOFRAN (CON.) [Concomitant]

REACTIONS (4)
  - BONE MARROW FAILURE [None]
  - DISEASE PROGRESSION [None]
  - INFECTION [None]
  - MULTI-ORGAN FAILURE [None]
